FAERS Safety Report 23403218 (Version 1)
Quarter: 2024Q1

REPORT INFORMATION
  Report Type: Spontaneous
  Country: AU (occurrence: AU)
  Receive Date: 20240116
  Receipt Date: 20240116
  Transmission Date: 20240410
  Serious: Yes (Other)
  Sender: FDA-Public Use
  Company Number: AU-AMGEN-AUSSP2024004504

PATIENT

DRUGS (1)
  1. PROLIA [Suspect]
     Active Substance: DENOSUMAB
     Indication: Osteoporosis
     Dosage: UNK
     Route: 065

REACTIONS (9)
  - Pathological fracture [Unknown]
  - Hip fracture [Unknown]
  - Spinal fracture [Unknown]
  - Pelvic fracture [Unknown]
  - Sternal fracture [Unknown]
  - Rib fracture [Unknown]
  - Wrist fracture [Unknown]
  - Shoulder fracture [Unknown]
  - Humerus fracture [Unknown]
